FAERS Safety Report 8070876-8 (Version None)
Quarter: 2012Q1

REPORT INFORMATION
  Report Type: 
  Country: None (occurrence: None)
  Receive Date: 20120125
  Receipt Date: 20120118
  Transmission Date: 20120608
  Serious: Yes (Death, Life-Threatening, Hospitalization, Other)
  Sender: FDA-Public Use
  Company Number: JP-ROCHE-1001817

PATIENT
  Sex: Female
  Weight: 56 kg

DRUGS (29)
  1. OXALIPLATIN [Suspect]
     Indication: COLON CANCER METASTATIC
     Dosage: UNCERTAIN DOSAGE AND SEVERAL COURSES
     Route: 041
     Dates: start: 20110708, end: 20110708
  2. DEXAMETHASONE SODIUM PHOSPHATE [Concomitant]
     Dosage: UNCERTAIN DOSAGE AND SEVERAL COURSES
     Route: 041
     Dates: start: 20110729, end: 20110729
  3. IRINOTECAN HYDROCHLORIDE [Concomitant]
     Route: 041
     Dates: start: 20090401, end: 20110325
  4. OXALIPLATIN [Suspect]
     Dosage: UNCERTAIN DOSAGE AND SEVERAL COURSES
     Route: 041
     Dates: start: 20110729, end: 20110729
  5. FLUOROURACIL [Concomitant]
     Indication: COLON CANCER METASTATIC
     Route: 040
     Dates: start: 20090401, end: 20110325
  6. ALOXI [Concomitant]
     Indication: PREMEDICATION
     Dosage: UNCERTAIN DOSAGE AND SEVERAL COURSES
     Route: 041
     Dates: start: 20110826, end: 20110826
  7. POLARAMINE [Concomitant]
     Dosage: UNCERTAIN DOSAGE AND SEVERAL COURSES
     Route: 041
     Dates: start: 20110729, end: 20110729
  8. XELODA [Suspect]
     Indication: COLON CANCER METASTATIC
     Dosage: UNCERTAIN DOSAGE AND SEVERAL COURSES
     Route: 048
     Dates: start: 20110708, end: 20110721
  9. XELODA [Suspect]
     Dosage: UNCERTAIN DOSAGE AND SEVERAL COURSES
     Route: 048
     Dates: start: 20110826, end: 20110908
  10. OXALIPLATIN [Suspect]
     Dosage: UNCERTAIN DOSAGE AND SEVERAL COURSES
     Route: 041
     Dates: start: 20110826, end: 20110826
  11. FAMOTIDINE [Concomitant]
     Dosage: UNCERTAIN DOSAGE AND SEVERAL COURSES
     Route: 041
     Dates: start: 20110826, end: 20110826
  12. POLARAMINE [Concomitant]
     Indication: PREMEDICATION
     Dosage: UNCERTAIN DOSAGE AND SEVERAL COURSES
     Route: 041
     Dates: start: 20110708, end: 20110708
  13. POLARAMINE [Concomitant]
     Dosage: UNCERTAIN DOSAGE AND SEVERAL COURSES
     Route: 041
     Dates: start: 20110826, end: 20110826
  14. XELODA [Suspect]
     Dosage: UNCERTAIN DOSAGE AND SEVERAL COURSES
     Route: 048
     Dates: start: 20110729, end: 20110805
  15. GRANISETRON [Concomitant]
     Dosage: UNCERTAIN DOSAGE AND SEVERAL COURSES
     Route: 041
     Dates: start: 20110729, end: 20110729
  16. FAMOTIDINE [Concomitant]
     Indication: PREMEDICATION
     Dosage: UNCERTAIN DOSAGE AND SEVERAL COURSES
     Route: 041
     Dates: start: 20110708, end: 20110708
  17. FAMOTIDINE [Concomitant]
     Dosage: UNCERTAIN DOSAGE AND SEVERAL COURSES
     Route: 041
     Dates: start: 20110729, end: 20110729
  18. FLUOROURACIL [Concomitant]
     Route: 041
     Dates: start: 20090401, end: 20110301
  19. AVASTIN [Suspect]
     Indication: COLON CANCER METASTATIC
     Route: 041
     Dates: start: 20090401, end: 20110325
  20. GLEEVEC [Concomitant]
     Indication: CHRONIC MYELOID LEUKAEMIA
     Route: 048
     Dates: start: 20051007, end: 20110926
  21. LEVOLEUCOVORIN CALCIUM [Concomitant]
     Indication: COLON CANCER METASTATIC
     Route: 041
     Dates: start: 20090401, end: 20110325
  22. ZOMETA [Suspect]
     Indication: PRODUCT USED FOR UNKNOWN INDICATION
     Dosage: UNCERTAIN DOSAGE AND SEVERAL COURSES
     Route: 041
     Dates: start: 20110708, end: 20110708
  23. CALBLOCK [Concomitant]
     Indication: HYPERTENSION
     Route: 048
     Dates: start: 20101203
  24. RIZE [Concomitant]
     Dosage: FOR TAKING AND TON THAN BEFORE
     Route: 048
  25. ZOMETA [Suspect]
     Dosage: UNCERTAIN DOSAGE AND SEVERAL COURSES
     Route: 041
     Dates: start: 20110729, end: 20110729
  26. ZOMETA [Suspect]
     Dosage: UNCERTAIN DOSAGE AND SEVERAL COURSES
     Route: 041
     Dates: start: 20110826, end: 20110826
  27. GRANISETRON [Concomitant]
     Indication: PREMEDICATION
     Dosage: UNCERTAIN DOSAGE AND SEVERAL COURSES
     Route: 041
     Dates: start: 20110708, end: 20110708
  28. DEXAMETHASONE SODIUM PHOSPHATE [Concomitant]
     Indication: PREMEDICATION
     Dosage: UNCERTAIN DOSAGE AND SEVERAL COURSES
     Route: 041
     Dates: start: 20110708, end: 20110708
  29. DEXAMETHASONE SODIUM PHOSPHATE [Concomitant]
     Dosage: UNCERTAIN DOSAGE AND SEVERAL COURSES
     Route: 041
     Dates: start: 20110826, end: 20110826

REACTIONS (15)
  - INTERSTITIAL LUNG DISEASE [None]
  - BLISTER [None]
  - DIARRHOEA [None]
  - RENAL IMPAIRMENT [None]
  - MOUTH HAEMORRHAGE [None]
  - RESTLESSNESS [None]
  - HEPATIC FAILURE [None]
  - DEVICE RELATED INFECTION [None]
  - ILEUS [None]
  - ERYTHEMA [None]
  - PNEUMOTHORAX [None]
  - INJECTION SITE EXTRAVASATION [None]
  - ANAPHYLACTIC REACTION [None]
  - RENAL FAILURE [None]
  - DEVICE RELATED SEPSIS [None]
